FAERS Safety Report 21389939 (Version 2)
Quarter: 2022Q4

REPORT INFORMATION
  Report Type: Spontaneous
  Country: US (occurrence: US)
  Receive Date: 20220929
  Receipt Date: 20221012
  Transmission Date: 20230112
  Serious: No
  Sender: FDA-Public Use
  Company Number: US-TEVA-2022-US-2076950

PATIENT
  Age: 66 Year
  Sex: Female

DRUGS (5)
  1. CARBIDOPA AND LEVODOPA [Suspect]
     Active Substance: CARBIDOPA\LEVODOPA
     Indication: Product used for unknown indication
     Dosage: 25-100 MG-MG, TAKING 2 PILLS EVERY 2.5 HOURS
     Route: 065
     Dates: start: 202208
  2. CARBIDOPA AND LEVODOPA [Suspect]
     Active Substance: CARBIDOPA\LEVODOPA
     Indication: Parkinson^s disease
     Dosage: 25-100 MG-MG, TAKING 2 PILLS EVERY 2.5 HOURS
     Route: 065
     Dates: start: 202208
  3. CARBIDOPA AND LEVODOPA [Suspect]
     Active Substance: CARBIDOPA\LEVODOPA
     Dosage: 25-100 MG
     Route: 065
     Dates: start: 2004
  4. Aleve PRN [Concomitant]
     Indication: Pain
  5. Pepcid PRN [Concomitant]
     Indication: Abdominal discomfort

REACTIONS (9)
  - Tremor [Not Recovered/Not Resolved]
  - Insomnia [Not Recovered/Not Resolved]
  - Feeling abnormal [Not Recovered/Not Resolved]
  - Freezing phenomenon [Unknown]
  - Cold sweat [Unknown]
  - Loss of personal independence in daily activities [Unknown]
  - Overdose [Not Recovered/Not Resolved]
  - Drug ineffective [Not Recovered/Not Resolved]
  - Therapeutic product effect decreased [Unknown]
